FAERS Safety Report 8304022-X (Version None)
Quarter: 2012Q2

REPORT INFORMATION
  Report Type: 
  Country: None (occurrence: None)
  Receive Date: 20120418
  Receipt Date: 20110707
  Transmission Date: 20120825
  Serious: No
  Sender: FDA-Public Use
  Company Number: AEUSA201100175

PATIENT
  Age: 43 Year
  Sex: Female
  Weight: 146.9654 kg

DRUGS (1)
  1. PROLASTIN-C [Suspect]
     Indication: ALPHA-1 ANTI-TRYPSIN DEFICIENCY
     Dosage: 60 MG/KG;QW;IV
     Route: 042
     Dates: start: 20110701, end: 20110701

REACTIONS (5)
  - HEADACHE [None]
  - CYANOSIS [None]
  - NAUSEA [None]
  - TREMOR [None]
  - ANXIETY [None]
